FAERS Safety Report 22607877 (Version 2)
Quarter: 2023Q2

REPORT INFORMATION
  Report Type: Report from Study
  Country: AR (occurrence: AR)
  Receive Date: 20230616
  Receipt Date: 20230621
  Transmission Date: 20230721
  Serious: Yes (Hospitalization)
  Sender: FDA-Public Use
  Company Number: AR-JNJFOC-20230616702

PATIENT
  Age: 41 Year
  Sex: Female
  Weight: 98 kg

DRUGS (1)
  1. SELEXIPAG [Suspect]
     Active Substance: SELEXIPAG
     Indication: Pulmonary arterial hypertension
     Route: 048
     Dates: start: 20191101

REACTIONS (9)
  - Seizure [Recovering/Resolving]
  - Loss of consciousness [Recovering/Resolving]
  - Choking [Recovering/Resolving]
  - Fall [Recovering/Resolving]
  - Oxygen saturation decreased [Not Recovered/Not Resolved]
  - Cough [Not Recovered/Not Resolved]
  - Face injury [Unknown]
  - Gait disturbance [Unknown]
  - Feeling cold [Unknown]

NARRATIVE: CASE EVENT DATE: 20230524
